FAERS Safety Report 20748170 (Version 1)
Quarter: 2022Q2

REPORT INFORMATION
  Report Type: Spontaneous
  Country: US (occurrence: US)
  Receive Date: 20220426
  Receipt Date: 20220426
  Transmission Date: 20220721
  Serious: Yes (Other)
  Sender: FDA-Public Use
  Company Number: US-ABBVIE-22K-163-4368283-00

PATIENT
  Sex: Male

DRUGS (1)
  1. CREON [Suspect]
     Active Substance: PANCRELIPASE AMYLASE\PANCRELIPASE LIPASE\PANCRELIPASE PROTEASE
     Indication: Pancreatitis chronic
     Dosage: 2 CAPSULES PER MEAL AND 1 PER SNACK?APPROXIMATELY 15 YEARS AGO
     Route: 048
     Dates: start: 2007

REACTIONS (2)
  - Pancreatic disorder [Not Recovered/Not Resolved]
  - Abdominal pain [Not Recovered/Not Resolved]
